FAERS Safety Report 6710562-7 (Version None)
Quarter: 2010Q2

REPORT INFORMATION
  Report Type: 
  Country: None (occurrence: None)
  Receive Date: 20100504
  Receipt Date: 20100324
  Transmission Date: 20101027
  Serious: No
  Sender: FDA-Public Use
  Company Number: US-BAYER-201018374NA

PATIENT
  Age: 56 Year
  Sex: Female

DRUGS (4)
  1. ULTRAVIST 300 [Suspect]
     Indication: COMPUTERISED TOMOGRAM ABDOMEN
     Dosage: TOTAL DAILY DOSE: 100 ML  UNIT DOSE: 100 ML
     Route: 042
     Dates: start: 20100305, end: 20100305
  2. STEROIDS [Concomitant]
     Indication: PREMEDICATION
     Dosage: 13 HOURS BEFROE INJECTION
  3. STEROIDS [Concomitant]
     Dosage: 2 HOURS BEFORE INJECTION
  4. BENADRYL [Concomitant]
     Indication: PREMEDICATION
     Dosage: AS USED: 25 MG
     Route: 042
     Dates: start: 20100305, end: 20100305

REACTIONS (1)
  - URTICARIA [None]
